FAERS Safety Report 9437511 (Version 1)
Quarter: 2013Q3

REPORT INFORMATION
  Report Type: Spontaneous
  Country: US (occurrence: US)
  Receive Date: 20130802
  Receipt Date: 20130802
  Transmission Date: 20140515
  Serious: No
  Sender: FDA-Public Use
  Company Number: US-PFIZER INC-2013223924

PATIENT
  Age: 86 Year
  Sex: Female
  Weight: 61.22 kg

DRUGS (2)
  1. ADVIL [Suspect]
     Indication: BACK PAIN
     Dosage: 200MG TWO TIMES A DAY
     Route: 048
     Dates: start: 201307
  2. SYNTHROID [Concomitant]
     Indication: THYROID DISORDER
     Dosage: 0.025 MG, DAILY
     Route: 048

REACTIONS (1)
  - Tinnitus [Unknown]
